FAERS Safety Report 8797708 (Version 3)
Quarter: 2012Q4

REPORT INFORMATION
  Report Type: 
  Country: US (occurrence: US)
  Receive Date: 20120920
  Receipt Date: 20121011
  Transmission Date: 20130627
  Serious: Yes (Death)
  Sender: FDA-Public Use
  Company Number: PHEH2012US018125

PATIENT
  Sex: Female
  Weight: 53.6 kg

DRUGS (23)
  1. AFINITOR [Suspect]
     Indication: BREAST CANCER METASTATIC
     Route: 048
     Dates: start: 20120228
  2. AFINITOR [Suspect]
     Dosage: 10 mg, BID
     Route: 048
     Dates: start: 20120326, end: 20120328
  3. AFINITOR [Suspect]
     Dosage: 10 mg, daily
     Route: 048
     Dates: start: 201207, end: 201207
  4. EXEMESTANE [Concomitant]
     Dosage: 25 mg, UNK
  5. MEGESTROL ACETATE [Concomitant]
     Dosage: 20 ml, daily
     Route: 048
     Dates: start: 20120807
  6. XELODA [Concomitant]
     Dates: start: 20120807
  7. AMBIEN [Concomitant]
     Dosage: 5 mg, daily
     Route: 048
     Dates: start: 20110302
  8. ATIVAN [Concomitant]
     Dosage: 1 mg, take as directed
     Route: 048
     Dates: start: 20120605
  9. CALCIUM CARBONATE W/COLECALCIFEROL [Concomitant]
     Dosage: 1 DF, UNK
     Route: 048
     Dates: start: 20120807
  10. CALCIUM GLUCONATE [Concomitant]
     Dosage: 1 g, daily for one day
     Route: 042
     Dates: start: 20120706
  11. CELEBREX [Concomitant]
     Dosage: 200 mg, BID
     Route: 048
     Dates: start: 20120503
  12. KETOCONAZOLE [Concomitant]
     Dosage: 1 DF, BID
     Dates: start: 20120807
  13. OXYCODONE HYDROCHLORIDE [Concomitant]
     Dosage: 5 mg, Q4H
     Route: 048
     Dates: start: 20120718
  14. POTASSIUM CHLORIDE [Concomitant]
     Dosage: 20 MEq, once short ovee 1 hour in NS 500 mL at the rate of 500 mL/hr
     Route: 042
     Dates: start: 20120706
  15. ONDANSETRON HYDROCHLORIDE [Concomitant]
     Route: 048
  16. REGLAN [Concomitant]
     Route: 048
  17. TEMAZEPAM [Concomitant]
     Dosage: 15 mg, daily
     Route: 048
  18. CIPRO [Concomitant]
     Dosage: 500 mg, BID
     Route: 048
     Dates: start: 20120522, end: 20120525
  19. DEXTROSE AND SODIUM CHLORIDE [Concomitant]
     Dosage: 500 ml, once
     Route: 042
     Dates: start: 20120703, end: 20120703
  20. ELIGARD [Concomitant]
     Dosage: 30 mg, every 120 days for 8 doses
     Route: 058
     Dates: start: 20101117, end: 20120725
  21. SEPTRA DS [Concomitant]
     Dosage: 1 DF, BID
     Route: 048
     Dates: start: 20120529
  22. SODIUM CHLORIDE [Concomitant]
     Dosage: 1000 ml, once
     Route: 042
     Dates: start: 20120705, end: 20120705
  23. XGEVA [Concomitant]
     Dosage: 120 mg, UNK
     Route: 058
     Dates: start: 20110202, end: 20120807

REACTIONS (8)
  - Hepatic failure [Fatal]
  - Cholestasis [Fatal]
  - Jaundice [Fatal]
  - Ascites [Fatal]
  - Fatigue [Fatal]
  - Abdominal pain [Fatal]
  - Nausea [Fatal]
  - Decreased appetite [Fatal]
